FAERS Safety Report 14460465 (Version 2)
Quarter: 2018Q1

REPORT INFORMATION
  Report Type: Report from Study
  Country: US (occurrence: US)
  Receive Date: 20180130
  Receipt Date: 20180131
  Transmission Date: 20180509
  Serious: Yes (Hospitalization)
  Sender: FDA-Public Use
  Company Number: US-009507513-1712USA010367

PATIENT
  Age: 42 Year
  Sex: Female

DRUGS (3)
  1. PEMBROLIZUMAB. [Suspect]
     Active Substance: PEMBROLIZUMAB
     Indication: GLIOBLASTOMA
     Dosage: 200 MG, Q3W
     Route: 042
     Dates: start: 20170906, end: 20171127
  2. AVASTIN [Suspect]
     Active Substance: BEVACIZUMAB
     Indication: GLIOBLASTOMA
     Dosage: TOTAL DAILY DOSE: 1000 MG, EVERY 2 WEEKS (Q2W)
     Route: 042
     Dates: start: 20170906, end: 20171127
  3. DEXAMETHASONE. [Concomitant]
     Active Substance: DEXAMETHASONE
     Indication: ROUTINE HEALTH MAINTENANCE
     Dosage: 4 MG, QD
     Route: 048
     Dates: start: 20171201, end: 20171215

REACTIONS (2)
  - Abulia [Recovering/Resolving]
  - Confusional state [Unknown]

NARRATIVE: CASE EVENT DATE: 20171206
